FAERS Safety Report 6134095-4 (Version None)
Quarter: 2009Q1

REPORT INFORMATION
  Report Type: 
  Country: None (occurrence: None)
  Receive Date: 20090217
  Receipt Date: 20080102
  Transmission Date: 20090719
  Serious: No
  Sender: FDA-Public Use
  Company Number: AEUSA200800002

PATIENT
  Age: 47 Year
  Sex: Female
  Weight: 104.3273 kg

DRUGS (1)
  1. PROLASTIN [Suspect]
     Dates: start: 20080102, end: 20080102

REACTIONS (1)
  - ACCIDENTAL NEEDLE STICK [None]
